FAERS Safety Report 6757931-7 (Version None)
Quarter: 2010Q2

REPORT INFORMATION
  Report Type: 
  Country: None (occurrence: None)
  Receive Date: 20100604
  Receipt Date: 20100604
  Transmission Date: 20101027
  Serious: Yes (Other)
  Sender: FDA-Public Use
  Company Number: None

PATIENT
  Age: 58 Year
  Sex: Female
  Weight: 93.441 kg

DRUGS (3)
  1. AZITHROMYCIN [Suspect]
     Indication: LUNG INFECTION
     Dates: start: 20100420, end: 20100424
  2. AMOXICILLIN AND CLAVULANATE POTASSIUM [Concomitant]
  3. AFRIN [Concomitant]

REACTIONS (1)
  - EUSTACHIAN TUBE STENOSIS [None]
